FAERS Safety Report 9798636 (Version 2)
Quarter: 2014Q1

REPORT INFORMATION
  Report Type: Spontaneous
  Country: US (occurrence: US)
  Receive Date: 20140106
  Receipt Date: 20140106
  Transmission Date: 20141002
  Serious: No
  Sender: FDA-Public Use
  Company Number: US-GILEAD-2010-0029541

PATIENT
  Sex: Female
  Weight: 67.13 kg

DRUGS (10)
  1. LETAIRIS [Suspect]
     Indication: PULMONARY ARTERIAL HYPERTENSION
     Route: 048
     Dates: start: 20090618
  2. OXYGEN [Concomitant]
  3. TYLENOL [Concomitant]
  4. FERROUS SULFATE [Concomitant]
  5. WARFARIN [Concomitant]
  6. METOPROLOL [Concomitant]
  7. WELLBUTRIN [Concomitant]
  8. OMEPRAZOLE [Concomitant]
  9. REMODULIN [Concomitant]
  10. ADCIRCA [Concomitant]

REACTIONS (2)
  - Pruritus [Recovered/Resolved]
  - Rash [Recovered/Resolved]
